FAERS Safety Report 5400199-4 (Version None)
Quarter: 2007Q3

REPORT INFORMATION
  Report Type: 
  Country: None (occurrence: None)
  Receive Date: 20070730
  Receipt Date: 20070717
  Transmission Date: 20080115
  Serious: Yes (Hospitalization, Other)
  Sender: FDA-Public Use
  Company Number: NO-AVENTIS-200713544EU

PATIENT
  Age: 39 Year
  Sex: Male

DRUGS (5)
  1. ENOXAPARIN SODIUM [Suspect]
     Route: 058
     Dates: start: 20060910, end: 20060925
  2. PLACEBO [Suspect]
     Route: 048
     Dates: start: 20060911, end: 20061012
  3. VANCOMYCIN [Concomitant]
     Indication: ANTIBIOTIC PROPHYLAXIS
     Route: 042
  4. DALACIN                            /00166002/ [Concomitant]
     Indication: ANTIBIOTIC PROPHYLAXIS
     Route: 042
  5. DALACIN                            /00166002/ [Concomitant]
     Route: 048

REACTIONS (2)
  - FISTULA [None]
  - WOUND SECRETION [None]
